FAERS Safety Report 16784591 (Version 1)
Quarter: 2019Q3

REPORT INFORMATION
  Report Type: Spontaneous
  Country: US (occurrence: US)
  Receive Date: 20190909
  Receipt Date: 20190909
  Transmission Date: 20191005
  Serious: No
  Sender: FDA-Public Use
  Company Number: US-009507513-1908USA009301

PATIENT
  Sex: Female
  Weight: 90 kg

DRUGS (2)
  1. BRIDION [Suspect]
     Active Substance: SUGAMMADEX
     Indication: NEUROMUSCULAR BLOCKADE REVERSAL
     Dosage: 200 MG DOSE
     Route: 042
     Dates: start: 20190820, end: 20190820
  2. BRIDION [Suspect]
     Active Substance: SUGAMMADEX
     Dosage: ANOTHER DOSE 200 MG
     Route: 042
     Dates: start: 20190820, end: 20190820

REACTIONS (3)
  - Hypopnoea [Unknown]
  - Incorrect dose administered [Unknown]
  - Therapeutic product effect incomplete [Recovered/Resolved]

NARRATIVE: CASE EVENT DATE: 20190820
